FAERS Safety Report 4543687-5 (Version None)
Quarter: 2005Q1

REPORT INFORMATION
  Report Type: 
  Country: None (occurrence: None)
  Receive Date: 20050103
  Receipt Date: 20041130
  Transmission Date: 20050727
  Serious: Yes (Hospitalization)
  Sender: FDA-Public Use
  Company Number: DE-AMGEN-UK100955

PATIENT
  Sex: Female

DRUGS (8)
  1. ARANESP [Suspect]
     Indication: RENAL FAILURE CHRONIC
     Route: 042
  2. DILATREND [Concomitant]
     Route: 048
  3. ALLOPURINOL [Concomitant]
     Route: 048
  4. CALCIUM ACETATE [Concomitant]
     Route: 048
  5. BUDESONIDE [Concomitant]
  6. GODAMED [Concomitant]
     Route: 048
  7. ATORVASTATIN CALCIUM [Concomitant]
     Route: 048
  8. CALCITRIOL [Concomitant]
     Route: 048

REACTIONS (2)
  - LYMPHOEDEMA [None]
  - SHUNT OCCLUSION [None]
